FAERS Safety Report 4897510-X (Version None)
Quarter: 2005Q4

REPORT INFORMATION
  Report Type: 
  Country: None (occurrence: None)
  Receive Date: 20051223
  Receipt Date: 20050907
  Transmission Date: 20060501
  Serious: No
  Sender: FDA-Public Use
  Company Number: 05P-163-0310964-00

PATIENT
  Age: 43 Year
  Sex: Female
  Weight: 58.9676 kg

DRUGS (8)
  1. HUMIRA [Suspect]
     Indication: RHEUMATOID ARTHRITIS
     Dosage: SEE IMAGE
     Route: 058
     Dates: start: 20030314, end: 20040701
  2. HUMIRA [Suspect]
     Indication: RHEUMATOID ARTHRITIS
     Dosage: SEE IMAGE
     Route: 058
     Dates: start: 20031201, end: 20040701
  3. . [Concomitant]
  4. PREDNISONE [Concomitant]
  5. ROFECOXIB [Concomitant]
  6. ESOMEPRAZOLE [Concomitant]
  7. CENTRUM [Concomitant]
  8. CALCIUM GLUCONATE [Concomitant]

REACTIONS (1)
  - LUPUS-LIKE SYNDROME [None]
